FAERS Safety Report 9167746 (Version 1)
Quarter: 2013Q1

REPORT INFORMATION
  Report Type: Spontaneous
  Country: US (occurrence: US)
  Receive Date: 20130318
  Receipt Date: 20130318
  Transmission Date: 20140127
  Serious: No
  Sender: FDA-Public Use
  Company Number: US-PFIZER INC-2013085392

PATIENT
  Sex: Female

DRUGS (2)
  1. CYTOMEL [Suspect]
     Dosage: UNK
  2. METOPROLOL TARTRATE [Interacting]
     Dosage: UNK

REACTIONS (2)
  - Drug interaction [Unknown]
  - Thyroid function test abnormal [Unknown]
